FAERS Safety Report 11193317 (Version 5)
Quarter: 2015Q3

REPORT INFORMATION
  Report Type: Spontaneous
  Country: US (occurrence: US)
  Receive Date: 20150616
  Receipt Date: 20150901
  Transmission Date: 20151125
  Serious: Yes (Hospitalization)
  Sender: FDA-Public Use
  Company Number: US-PFIZER INC-2015197029

PATIENT
  Age: 68 Year
  Sex: Male

DRUGS (2)
  1. QUINAPRIL [Suspect]
     Active Substance: QUINAPRIL\QUINAPRIL HYDROCHLORIDE
     Indication: BLOOD GLUCOSE
     Dosage: UNK  (SMALL 10MM)
  2. ROBITUSSIN COUGH AND CHEST CONGESTION DM [Suspect]
     Active Substance: DEXTROMETHORPHAN HYDROBROMIDE\GUAIFENESIN
     Indication: COUGH
     Dosage: 1 DF, UNK
     Dates: start: 20150601

REACTIONS (3)
  - Drug ineffective [Unknown]
  - Product use issue [Unknown]
  - Blood glucose increased [Recovered/Resolved]
